FAERS Safety Report 8595327-6 (Version None)
Quarter: 2012Q3

REPORT INFORMATION
  Report Type: 
  Country: None (occurrence: None)
  Receive Date: 20120815
  Receipt Date: 20120810
  Transmission Date: 20120928
  Serious: Yes (Other)
  Sender: FDA-Public Use
  Company Number: PHEH2012US015819

PATIENT
  Age: 73 Year
  Sex: Female

DRUGS (2)
  1. TOBI [Suspect]
     Indication: ILL-DEFINED DISORDER
     Dosage: 300 MG, BID
     Dates: start: 20120615, end: 20120703
  2. XOPENEX [Concomitant]
     Dosage: UNK UKN, UNK

REACTIONS (2)
  - ANAPHYLACTIC REACTION [None]
  - DYSPNOEA [None]
